FAERS Safety Report 22048399 (Version 1)
Quarter: 2023Q1

REPORT INFORMATION
  Report Type: Spontaneous
  Country: CA (occurrence: CA)
  Receive Date: 20230301
  Receipt Date: 20230301
  Transmission Date: 20230418
  Serious: Yes (Hospitalization, Other)
  Sender: FDA-Public Use
  Company Number: CA-Indoco-000390

PATIENT
  Age: 15 Year
  Sex: Female

DRUGS (2)
  1. ACETYLCYSTEINE [Suspect]
     Active Substance: ACETYLCYSTEINE
     Dosage: FOR 57 H
  2. ACETAMINOPHEN [Suspect]
     Active Substance: ACETAMINOPHEN

REACTIONS (8)
  - Accidental overdose [Unknown]
  - Seizure [Unknown]
  - Brain death [Unknown]
  - Product prescribing error [Unknown]
  - Brain herniation [Unknown]
  - Hepatic encephalopathy [Recovering/Resolving]
  - Hypothermia [Unknown]
  - Uraemic encephalopathy [Recovering/Resolving]
